FAERS Safety Report 7746228-4 (Version None)
Quarter: 2011Q3

REPORT INFORMATION
  Report Type: 
  Country: None (occurrence: None)
  Receive Date: 20110913
  Receipt Date: 20110908
  Transmission Date: 20111222
  Serious: Yes (Other)
  Sender: FDA-Public Use
  Company Number: GR-BRISTOL-MYERS SQUIBB COMPANY-15053549

PATIENT
  Age: 74 Year
  Sex: Male

DRUGS (7)
  1. AMIODARONE HCL [Concomitant]
  2. LIPITOR [Concomitant]
  3. PRILOSEC [Concomitant]
  4. METHOTREXATE [Concomitant]
  5. PREDNISOLONE [Concomitant]
  6. ORENCIA [Suspect]
     Indication: RHEUMATOID ARTHRITIS
     Route: 042
     Dates: start: 20090108, end: 20100305
  7. SINTROM [Concomitant]

REACTIONS (1)
  - HEPATITIS B [None]
